FAERS Safety Report 13317869 (Version 1)
Quarter: 2017Q1

REPORT INFORMATION
  Report Type: Spontaneous
  Country: US (occurrence: US)
  Receive Date: 20170310
  Receipt Date: 20170310
  Transmission Date: 20170428
  Serious: No
  Sender: FDA-Public Use
  Company Number: US-PFIZER INC-2017097668

PATIENT
  Sex: Male

DRUGS (2)
  1. EUCRISA [Suspect]
     Active Substance: CRISABOROLE
     Indication: PRURITUS
  2. EUCRISA [Suspect]
     Active Substance: CRISABOROLE
     Indication: PSORIASIS
     Dosage: UNK, 1X/DAY (ONCE DAILY FOR 1 WEEK)
     Route: 061

REACTIONS (2)
  - Thermal burn [Unknown]
  - Drug ineffective for unapproved indication [Unknown]
